FAERS Safety Report 19927081 (Version 2)
Quarter: 2022Q1

REPORT INFORMATION
  Report Type: Report from Study
  Country: US (occurrence: US)
  Receive Date: 20211006
  Receipt Date: 20220115
  Transmission Date: 20220423
  Serious: Yes (Hospitalization)
  Sender: FDA-Public Use
  Company Number: US-REGENERON PHARMACEUTICALS, INC.-2021-84267

PATIENT
  Age: 69 Year
  Sex: Male

DRUGS (21)
  1. CASIRIVIMAB\IMDEVIMAB [Suspect]
     Active Substance: CASIRIVIMAB\IMDEVIMAB
     Indication: COVID-19
     Dosage: 1200 MG, SINGLE
     Route: 042
     Dates: start: 20210903, end: 20210903
  2. GAVISCON [Concomitant]
     Active Substance: ALUMINUM HYDROXIDE\MAGNESIUM CARBONATE
     Indication: Gastrooesophageal reflux disease
     Dosage: CHEW 2 TABLETS (14.2 MG) ONCE AS NEEDED, ONLY USES PRN
     Route: 060
  3. UROXATRAL [Concomitant]
     Active Substance: ALFUZOSIN HYDROCHLORIDE
     Indication: Benign prostatic hyperplasia
     Dosage: TAKE 1 TABLET (10 MG TOTAL) BY MOUTH DAILY
     Route: 048
  4. ECOTRIN [Concomitant]
     Active Substance: ASPIRIN
     Indication: Ischaemic heart disease prophylaxis
     Dosage: TAKE 81 MG BY MOUTH DAILY
     Route: 048
  5. LIPITOR [Concomitant]
     Active Substance: ATORVASTATIN CALCIUM
     Indication: Hyperlipidaemia
     Dosage: TAKE 1 TABLET 80 MG TOTAL BY MOUTH DAILY
     Route: 048
  6. CALCIUM CITRATE\VITAMIN D [Concomitant]
     Active Substance: CALCIUM CITRATE\VITAMIN D
     Indication: Supplementation therapy
     Dosage: TAKE BY MOUTH
     Route: 048
  7. ZETIA [Concomitant]
     Active Substance: EZETIMIBE
     Indication: Hyperlipidaemia
     Dosage: TAKE 1 TABLET (10MG TOTAL) BY MOUTH DAILY
     Route: 048
  8. PEPCID [Concomitant]
     Active Substance: FAMOTIDINE
     Indication: Gastrooesophageal reflux disease
     Dosage: TAKE 20MG BY MOUTH DAILY AS NEEDED
     Route: 048
  9. PROSCAR [Concomitant]
     Active Substance: FINASTERIDE
     Indication: Benign prostatic hyperplasia
     Dosage: TAKE 1 TABLET (5 MG TOTAL) BY MOUTH DAILY
     Route: 048
  10. FLONASE [Concomitant]
     Active Substance: FLUTICASONE PROPIONATE
     Indication: Hypersensitivity
     Dosage: 1 SPRAY BY EACH NARE ROUTE CONTINUOUS AS NEEDED FOR RHINITS
     Route: 045
  11. LASIX [Concomitant]
     Active Substance: FUROSEMIDE
     Indication: Hypertension
     Dosage: TAKE 20 MG BY MOUTH DAILY
     Route: 048
  12. NEURONTIN [Concomitant]
     Active Substance: GABAPENTIN
     Indication: Product used for unknown indication
     Dosage: TAKE 1 CAPSULE BY MOUTH ONCE DAILY FOR 30 DAYS
     Route: 048
  13. PROBIOTICS NOS [Concomitant]
     Active Substance: PROBIOTICS NOS
     Indication: Product used for unknown indication
     Dosage: TAKE BY MOUTH DAILY
     Route: 048
  14. ELIGARD [Concomitant]
     Active Substance: LEUPROLIDE ACETATE
     Indication: Prostate cancer
     Dosage: INJECT 45 MG UNDER THE SKIN EVERY SIX MOUTH
     Route: 058
  15. GLUCOPHAGE [Concomitant]
     Active Substance: METFORMIN HYDROCHLORIDE
     Indication: Diabetes mellitus
     Dosage: TAKE 500 MG BY MOUTH DAILY
     Route: 048
  16. LOPRESSOR [Concomitant]
     Active Substance: METOPROLOL TARTRATE
     Indication: Hypertension
     Dosage: TAKE 12.5 MG BY MOUTH TWO TIMES A DAY
     Route: 048
  17. ELOCON [Concomitant]
     Active Substance: MOMETASONE FUROATE
     Indication: Rash
     Dosage: APPLY TOPICALLY CONTINOUD AS NEEDED FOR RASH
     Route: 061
  18. NITROSTAT [Concomitant]
     Active Substance: NITROGLYCERIN
     Indication: Coronary artery disease
     Dosage: PLACE 0.4 MG UNDER THE TONGUE EVERY 5 MINUTES AS NEEDED FOR CHEST PAIN
     Route: 060
  19. PRILOSEC [Concomitant]
     Active Substance: OMEPRAZOLE MAGNESIUM
     Indication: Gastrooesophageal reflux disease
     Dosage: TAKE 20 MG BY MOUTH DAILY
     Route: 048
     Dates: start: 20200901
  20. GLYCOLAX [Concomitant]
     Active Substance: POLYETHYLENE GLYCOL 3350
     Indication: Product used for unknown indication
     Dosage: TAKE 17 G BY MOUTH DALY, TAKE AS NEEDED
     Route: 048
  21. KLOR-CON [Concomitant]
     Active Substance: POTASSIUM CHLORIDE
     Indication: Product used for unknown indication
     Dosage: TAKE 20 MEQ, BY MOUTH DAILY
     Route: 048

REACTIONS (8)
  - Nodule [Unknown]
  - Nasopharyngitis [Unknown]
  - Nasal congestion [Unknown]
  - Tension headache [Recovering/Resolving]
  - Nasal discomfort [Unknown]
  - Hypertension [Unknown]
  - Rash [Recovered/Resolved]
  - Infusion related hypersensitivity reaction [Unknown]

NARRATIVE: CASE EVENT DATE: 20210907
